FAERS Safety Report 17097698 (Version 2)
Quarter: 2020Q4

REPORT INFORMATION
  Report Type: Spontaneous
  Country: GT (occurrence: GT)
  Receive Date: 20191202
  Receipt Date: 20201127
  Transmission Date: 20210113
  Serious: Yes (Death)
  Sender: FDA-Public Use
  Company Number: NVSC2019GT046179

PATIENT
  Sex: Female

DRUGS (1)
  1. GLIVEC [Suspect]
     Active Substance: IMATINIB MESYLATE
     Indication: GASTROINTESTINAL STROMAL TUMOUR
     Dosage: 6 DF
     Route: 065

REACTIONS (5)
  - Death [Fatal]
  - Peripheral swelling [Unknown]
  - Lung disorder [Unknown]
  - Cough [Unknown]
  - Pain [Unknown]
